FAERS Safety Report 9527640 (Version 1)
Quarter: 2013Q1

REPORT INFORMATION
  Report Type: Spontaneous
  Country: US (occurrence: None)
  Receive Date: 20130314
  Receipt Date: 20130314
  Transmission Date: 20140127
  Serious: No
  Sender: FDA-Public Use
  Company Number: 1211USA006285

PATIENT
  Sex: Male

DRUGS (3)
  1. PEGINTRON [Suspect]
     Indication: HEPATITIS C
     Dates: start: 20120525, end: 20121010
  2. REBETOL (RIBAVIRIN) CAPSULE [Suspect]
     Indication: HEPATITIS C
     Route: 048
     Dates: start: 20120525
  3. VICTRELIS [Suspect]
     Indication: HEPATITIS C
     Route: 048
     Dates: start: 20120623

REACTIONS (13)
  - Decreased immune responsiveness [None]
  - Infection [None]
  - Pain in extremity [None]
  - Local swelling [None]
  - Swelling face [None]
  - Eye swelling [None]
  - Weight decreased [None]
  - Pain [None]
  - Insomnia [None]
  - Dark circles under eyes [None]
  - White blood cell count decreased [None]
  - Rash macular [None]
  - Rash pruritic [None]
